FAERS Safety Report 7190724-8 (Version None)
Quarter: 2010Q4

REPORT INFORMATION
  Report Type: 
  Country: None (occurrence: None)
  Receive Date: 20101223
  Receipt Date: 20101217
  Transmission Date: 20110411
  Serious: Yes (Hospitalization)
  Sender: FDA-Public Use
  Company Number: US-US-EMD SERONO, INC.-7031446

PATIENT
  Sex: Female
  Weight: 61 kg

DRUGS (6)
  1. REBIF [Suspect]
     Indication: MULTIPLE SCLEROSIS
     Route: 058
     Dates: start: 20100423, end: 20100901
  2. REBIF [Suspect]
     Route: 058
     Dates: start: 20100101
  3. LORTAB [Concomitant]
     Indication: MIGRAINE
  4. VITAMIN D [Concomitant]
     Indication: PROPHYLAXIS
  5. METHYLPREDNISOLONE [Concomitant]
     Indication: MULTIPLE SCLEROSIS
  6. LYRICA [Concomitant]
     Indication: PAIN

REACTIONS (7)
  - ANAEMIA [None]
  - CARDIAC VENTRICULAR DISORDER [None]
  - CHILLS [None]
  - DEPRESSION [None]
  - INJECTION SITE MASS [None]
  - MYALGIA [None]
  - PYREXIA [None]
